FAERS Safety Report 7499307-3 (Version None)
Quarter: 2011Q2

REPORT INFORMATION
  Report Type: 
  Country: None (occurrence: None)
  Receive Date: 20110524
  Receipt Date: 20110518
  Transmission Date: 20111010
  Serious: Yes (Death, Other)
  Sender: FDA-Public Use
  Company Number: AT-CELGENEUS-009-50794-11052308

PATIENT
  Sex: Male

DRUGS (1)
  1. VIDAZA [Suspect]
     Route: 050
     Dates: end: 20110428

REACTIONS (3)
  - LEUKOCYTOSIS [None]
  - DEATH [None]
  - RENAL FAILURE ACUTE [None]
